FAERS Safety Report 10166300 (Version 2)
Quarter: 2014Q2

REPORT INFORMATION
  Report Type: Spontaneous
  Country: CA (occurrence: CA)
  Receive Date: 20140512
  Receipt Date: 20140512
  Transmission Date: 20141212
  Serious: Yes (Other)
  Sender: FDA-Public Use
  Company Number: CA-AMGEN INC.-CANSP2013080751

PATIENT
  Age: 82 Year
  Sex: Female

DRUGS (3)
  1. PROLIA [Suspect]
     Indication: OSTEOPOROSIS POSTMENOPAUSAL
     Dosage: 60 MG/ML, UNK
     Route: 065
     Dates: start: 20121102
  2. CALCIUM [Concomitant]
  3. VITAMIN D                          /00107901/ [Concomitant]

REACTIONS (8)
  - Wrist fracture [Unknown]
  - Fall [Unknown]
  - Cardiac fibrillation [Unknown]
  - Palpitations [Unknown]
  - Blood pressure abnormal [Unknown]
  - Arthralgia [Unknown]
  - Inflammation [Unknown]
  - Pain [Unknown]
